FAERS Safety Report 16054943 (Version 2)
Quarter: 2019Q1

REPORT INFORMATION
  Report Type: Spontaneous
  Country: KR (occurrence: KR)
  Receive Date: 20190310
  Receipt Date: 20190322
  Transmission Date: 20190418
  Serious: Yes (Death)
  Sender: FDA-Public Use
  Company Number: KR-UNITED THERAPEUTICS-UNT-2019-004365

PATIENT
  Age: 1 Year
  Sex: Female

DRUGS (1)
  1. REMODULIN [Suspect]
     Active Substance: TREPROSTINIL
     Indication: PULMONARY ARTERIAL HYPERTENSION
     Dosage: 0.040 ?G/KG, CONTINUING (5.75U/H)
     Route: 058
     Dates: start: 20190103, end: 20190305

REACTIONS (3)
  - Cardiopulmonary failure [Fatal]
  - General physical health deterioration [Fatal]
  - Cardiac dysfunction [Fatal]

NARRATIVE: CASE EVENT DATE: 20190305
